FAERS Safety Report 4804918-7 (Version None)
Quarter: 2005Q4

REPORT INFORMATION
  Report Type: 
  Country: None (occurrence: None)
  Receive Date: 20051020
  Receipt Date: 20050908
  Transmission Date: 20060501
  Serious: Yes (Disabling, Other)
  Sender: FDA-Public Use
  Company Number: JP-BRISTOL-MYERS SQUIBB COMPANY-13104963

PATIENT
  Age: 48 Year
  Sex: Female

DRUGS (2)
  1. TAXOL [Suspect]
     Indication: BREAST CANCER
     Dosage: INITIAL THERAPY ADMINISTERED UNTIL 28-MAR-2005; CONTINUED 27-JUN TO 08-SEP-05
     Route: 042
     Dates: start: 20041220
  2. HERCEPTIN [Concomitant]
     Route: 041
     Dates: start: 20041220, end: 20050912

REACTIONS (2)
  - NEUROPATHY PERIPHERAL [None]
  - PAROSMIA [None]
